FAERS Safety Report 12058800 (Version 3)
Quarter: 2016Q2

REPORT INFORMATION
  Report Type: Spontaneous
  Country: US (occurrence: US)
  Receive Date: 20160210
  Receipt Date: 20160601
  Transmission Date: 20160815
  Serious: Yes (Other)
  Sender: FDA-Public Use
  Company Number: US-009507513-1602USA003668

PATIENT
  Sex: Female

DRUGS (1)
  1. NUVARING [Suspect]
     Active Substance: ETHINYL ESTRADIOL\ETONOGESTREL
     Indication: CONTRACEPTION
     Dosage: STRENGTH: 0.015/0.12 (UNIT NOT PROVIDED)
     Route: 067

REACTIONS (3)
  - Pregnancy with contraceptive device [Unknown]
  - Overweight [Unknown]
  - Unintended pregnancy [Unknown]
